FAERS Safety Report 16129421 (Version 1)
Quarter: 2019Q2

REPORT INFORMATION
  Report Type: Spontaneous
  Country: US (occurrence: US)
  Receive Date: 20190328
  Receipt Date: 20190328
  Transmission Date: 20190711
  Serious: No
  Sender: FDA-Public Use
  Company Number: US-BAYER-2019-056064

PATIENT
  Age: 80 Year
  Sex: Male
  Weight: 76 kg

DRUGS (17)
  1. METOPROLOL. [Suspect]
     Active Substance: METOPROLOL
  2. ATORVASTATIN [Suspect]
     Active Substance: ATORVASTATIN
  3. FOLIC ACID. [Suspect]
     Active Substance: FOLIC ACID
  4. MELATONIN [Suspect]
     Active Substance: MELATONIN
  5. TAMSULOSIN [Suspect]
     Active Substance: TAMSULOSIN
  6. COQ10 [ASCORBIC ACID;BETACAROTENE;CUPRIC OXIDE;MANGANESE SULFATE;S [Suspect]
     Active Substance: MINERALS\VITAMINS
  7. MIRALAX [Suspect]
     Active Substance: POLYETHYLENE GLYCOL 3350
     Indication: GASTROINTESTINAL DISORDER
     Dosage: 1 DF, QD
     Route: 048
     Dates: start: 20190314
  8. GABAPENTIN. [Suspect]
     Active Substance: GABAPENTIN
  9. CENTRUM SILVER [ASCORBIC ACID;BIOTIN;CALCIUM;CALCIUM PHOSPHATE DIB [Suspect]
     Active Substance: MINERALS\VITAMINS
  10. ZOMETA [Suspect]
     Active Substance: ZOLEDRONIC ACID
     Indication: NEOPLASM MALIGNANT
     Dosage: UNK UNK, Q3MON
     Route: 042
  11. XTANDI [Suspect]
     Active Substance: ENZALUTAMIDE
  12. LOSARTAN. [Suspect]
     Active Substance: LOSARTAN
  13. LUPRON [Suspect]
     Active Substance: LEUPROLIDE ACETATE
     Indication: NEOPLASM MALIGNANT
     Dosage: UNK, Q3MON
  14. FUROSEMIDE. [Suspect]
     Active Substance: FUROSEMIDE
  15. CITRACAL PETITES [Suspect]
     Active Substance: CALCIUM CITRATE
     Dosage: UNK
     Route: 065
  16. DIPYRIDAMOLE. [Suspect]
     Active Substance: DIPYRIDAMOLE
  17. VITAMIN C [CALCIUM ASCORBATE] [Suspect]
     Active Substance: CALCIUM ASCORBATE

REACTIONS (1)
  - Faeces discoloured [Not Recovered/Not Resolved]

NARRATIVE: CASE EVENT DATE: 20190317
